FAERS Safety Report 18238394 (Version 1)
Quarter: 2020Q3

REPORT INFORMATION
  Report Type: Spontaneous
  Country: FR (occurrence: FR)
  Receive Date: 20200907
  Receipt Date: 20200907
  Transmission Date: 20201103
  Serious: Yes (Hospitalization)
  Sender: FDA-Public Use
  Company Number: NVSC2020FR242317

PATIENT
  Age: 77 Year
  Sex: Male
  Weight: 70 kg

DRUGS (6)
  1. MYDRIASERT [Suspect]
     Active Substance: PHENYLEPHRINE HYDROCHLORIDE\TROPICAMIDE
     Indication: MYDRIASIS
     Dosage: 1 DF, 1 INSERTION AVANT CHIRURGIE
     Route: 047
     Dates: start: 20200728, end: 20200728
  2. AZYTER [Suspect]
     Active Substance: AZITHROMYCIN ANHYDROUS
     Indication: ANTIBIOTIC PROPHYLAXIS
     Dosage: 2 DRP, 1 GOUTTE X2/JOUR
     Route: 047
     Dates: start: 20200728, end: 20200801
  3. DEXAFREE [Suspect]
     Active Substance: DEXAMETHASONE SODIUM PHOSPHATE
     Indication: CATARACT OPERATION
     Dosage: 3 DRP, 1 GOUTTE X3/JOUR
     Route: 047
     Dates: start: 20200728, end: 20200728
  4. APROKAM [Suspect]
     Active Substance: CEFUROXIME SODIUM
     Indication: ANTIBIOTIC PROPHYLAXIS
     Dosage: 1 MG LORS DE LA CHIRURGIE
     Route: 047
     Dates: start: 20200728, end: 20200728
  5. XYLOGEL [XYLITOL] [Suspect]
     Active Substance: XYLITOL
     Indication: LOCAL ANAESTHESIA
     Dosage: UNK
     Route: 047
     Dates: start: 20200728
  6. IOPIDINE [Suspect]
     Active Substance: APRACLONIDINE HYDROCHLORIDE
     Indication: CATARACT OPERATION
     Dosage: 3 DRP, 1 GOUTTE X3/JOUR
     Route: 065
     Dates: start: 20200728

REACTIONS (1)
  - Endophthalmitis [Recovering/Resolving]

NARRATIVE: CASE EVENT DATE: 20200730
